FAERS Safety Report 8049985-5 (Version None)
Quarter: 2012Q1

REPORT INFORMATION
  Report Type: 
  Country: None (occurrence: None)
  Receive Date: 20120117
  Receipt Date: 20120112
  Transmission Date: 20120608
  Serious: Yes (Other)
  Sender: FDA-Public Use
  Company Number: US-PFIZER INC-2011270771

PATIENT
  Sex: Female
  Weight: 69.388 kg

DRUGS (11)
  1. AMLODIPINE [Concomitant]
     Indication: HYPERTENSION
     Dosage: 5 MG, 1X/DAY
  2. SUTENT [Suspect]
     Indication: RENAL CANCER METASTATIC
     Dosage: 12.5 MG, 3X/DAY (37.5 MG, DAILY), FOR 28 DAYS, REST FOR 14 DAYS
     Route: 048
     Dates: start: 20110101
  3. LOSARTAN [Concomitant]
     Indication: HYPERTENSION
     Dosage: 100 MG, 1X/DAY
  4. COENZYME Q10 [Concomitant]
     Indication: MUSCLE SPASMS
     Dosage: 100 MG, 1X/DAY
  5. PAZOPANIB [Suspect]
     Indication: RENAL CANCER METASTATIC
     Dosage: 4 TABLETS, DAILY
     Route: 048
  6. DOXAZOSIN MESILATE [Concomitant]
     Dosage: 4 MG, 1X/DAY
  7. MULTI-VITAMINS [Concomitant]
     Dosage: 1X/DAY
  8. VITAMIN D [Concomitant]
     Dosage: 1000 IU, 1X/DAY
  9. SUTENT [Suspect]
     Indication: LUNG NEOPLASM MALIGNANT
  10. LEVOTHYROXINE [Concomitant]
     Indication: THYROID DISORDER
     Dosage: 75 UG, 1X/DAY
  11. CALTRATE 600+D [Concomitant]
     Dosage: 1X/DAY

REACTIONS (8)
  - LIVER INJURY [None]
  - HAEMOPTYSIS [None]
  - RENAL CANCER [None]
  - ABDOMINAL DISTENSION [None]
  - GASTROOESOPHAGEAL REFLUX DISEASE [None]
  - COUGH [None]
  - DISEASE PROGRESSION [None]
  - HEPATITIS [None]
